FAERS Safety Report 8593143-2 (Version None)
Quarter: 2012Q3

REPORT INFORMATION
  Report Type: 
  Country: None (occurrence: None)
  Receive Date: 20120814
  Receipt Date: 20120803
  Transmission Date: 20120928
  Serious: No
  Sender: FDA-Public Use
  Company Number: US-ASTRAZENECA-2012SE55341

PATIENT
  Age: 50 Year
  Sex: Male

DRUGS (1)
  1. NEXIUM [Suspect]
     Route: 048

REACTIONS (6)
  - APHAGIA [None]
  - BACK DISORDER [None]
  - DYSPEPSIA [None]
  - INSOMNIA [None]
  - ULCER [None]
  - DRUG DOSE OMISSION [None]
